FAERS Safety Report 21221854 (Version 1)
Quarter: 2022Q3

REPORT INFORMATION
  Report Type: Spontaneous
  Country: US (occurrence: US)
  Receive Date: 20220817
  Receipt Date: 20220817
  Transmission Date: 20221027
  Serious: Yes (Other)
  Sender: FDA-Public Use
  Company Number: US-BRISTOL-MYERS SQUIBB COMPANY-2022-090343

PATIENT
  Age: 71 Year
  Sex: Male
  Weight: 90.72 kg

DRUGS (2)
  1. REVLIMID [Suspect]
     Active Substance: LENALIDOMIDE
     Indication: Plasma cell myeloma
     Dosage: FREQUENCY - D 1-14 Q 21 DAYS
     Route: 048
     Dates: start: 20210926
  2. REVLIMID [Suspect]
     Active Substance: LENALIDOMIDE
     Dosage: FREQUENCY - D 1-14 Q 21 DAYS
     Route: 065

REACTIONS (3)
  - Renal impairment [Unknown]
  - Dehydration [Unknown]
  - Off label use [Unknown]
